FAERS Safety Report 21442462 (Version 1)
Quarter: 2022Q4

REPORT INFORMATION
  Report Type: Other
  Country: None (occurrence: NZ)
  Receive Date: 20221011
  Receipt Date: 20221011
  Transmission Date: 20230113
  Serious: Yes (Hospitalization, Other)
  Sender: FDA-Public Use
  Company Number: NZ-ACIC Fine Chemicals Inc-2133711

PATIENT
  Age: 75 Year
  Sex: Female

DRUGS (10)
  1. TRANEXAMIC ACID [Suspect]
     Active Substance: TRANEXAMIC ACID
     Indication: Product used for unknown indication
     Route: 065
  2. FELODIPINE [Concomitant]
     Active Substance: FELODIPINE
  3. BACLOFEN [Concomitant]
     Active Substance: BACLOFEN
  4. CILAZAPRIL ANHYDROUS [Concomitant]
     Active Substance: CILAZAPRIL ANHYDROUS
  5. CLOPIDOGREL [Concomitant]
     Active Substance: CLOPIDOGREL BISULFATE
  6. SPIRONOLACTONE [Concomitant]
     Active Substance: SPIRONOLACTONE
  7. UNSPECIFIED INGREDIENT [Concomitant]
     Active Substance: UNSPECIFIED INGREDIENT
     Route: 042
  8. PROPOFOL [Concomitant]
     Active Substance: PROPOFOL
  9. METARAMINOL [Concomitant]
     Active Substance: METARAMINOL
  10. ENOXAPARIN SODIUM [Concomitant]
     Active Substance: ENOXAPARIN SODIUM

REACTIONS (3)
  - Disease progression [Unknown]
  - Myocardial infarction [Unknown]
  - Coronary artery disease [Unknown]
